FAERS Safety Report 21759019 (Version 1)
Quarter: 2022Q4

REPORT INFORMATION
  Report Type: Report from Study
  Country: US (occurrence: US)
  Receive Date: 20221221
  Receipt Date: 20221221
  Transmission Date: 20230113
  Serious: No
  Sender: FDA-Public Use
  Company Number: US-ABBVIE-22K-163-4488860-00

PATIENT
  Age: 49 Year
  Sex: Female

DRUGS (3)
  1. SKYRIZI [Suspect]
     Active Substance: RISANKIZUMAB-RZAA
     Indication: Psoriasis
     Dosage: WEEK 0
     Route: 058
     Dates: start: 20220529, end: 20220529
  2. SKYRIZI [Suspect]
     Active Substance: RISANKIZUMAB-RZAA
     Dosage: PARTIAL ONSET DATE OF 2022 WAS NOT CAPTURED FOR THE EVENTS COVID INFECTION, FLUID IN EARS AND PSO...
     Route: 058
  3. SKYRIZI [Suspect]
     Active Substance: RISANKIZUMAB-RZAA
     Dosage: WEEK 4
     Route: 058
     Dates: start: 20220710, end: 20220710

REACTIONS (4)
  - COVID-19 [Unknown]
  - Middle ear effusion [Unknown]
  - Psoriasis [Unknown]
  - Erythema [Unknown]

NARRATIVE: CASE EVENT DATE: 20220728
